FAERS Safety Report 11464823 (Version 1)
Quarter: 2015Q3

REPORT INFORMATION
  Report Type: Spontaneous
  Country: IT (occurrence: IT)
  Receive Date: 20150906
  Receipt Date: 20150906
  Transmission Date: 20151125
  Serious: Yes (Hospitalization, Other)
  Sender: FDA-Public Use
  Company Number: IT-AMGEN-ITASP2015090070

PATIENT
  Age: 40 Year
  Sex: Female

DRUGS (5)
  1. CELLUVISC                          /00007002/ [Concomitant]
     Route: 048
  2. ENBREL [Suspect]
     Active Substance: ETANERCEPT
     Indication: RHEUMATOID ARTHRITIS
     Dosage: 50 MG, WEEKLY
     Route: 058
     Dates: start: 20111108
  3. DIBASE [Concomitant]
     Active Substance: CHOLECALCIFEROL
     Route: 048
  4. AULIN [Concomitant]
     Active Substance: NIMESULIDE
     Dosage: 100 MG, UNK
     Route: 048
  5. PANTORC [Concomitant]
     Active Substance: PANTOPRAZOLE SODIUM
     Route: 048

REACTIONS (1)
  - Meningitis aseptic [Recovering/Resolving]

NARRATIVE: CASE EVENT DATE: 20150724
